FAERS Safety Report 5961198-7 (Version None)
Quarter: 2008Q4

REPORT INFORMATION
  Report Type: 
  Country: None (occurrence: None)
  Receive Date: 20081121
  Receipt Date: 20081112
  Transmission Date: 20090506
  Serious: Yes (Hospitalization, Other)
  Sender: FDA-Public Use
  Company Number: US-BIOGENIDEC-2008BI027686

PATIENT
  Age: 54 Year
  Sex: Male
  Weight: 100 kg

DRUGS (20)
  1. TYSABRI [Suspect]
     Indication: CROHN'S DISEASE
     Route: 042
     Dates: start: 20080717, end: 20080717
  2. AMBIEN [Concomitant]
  3. AMILORIDE HYDROCHLORIDE [Concomitant]
  4. ASPIRIN [Concomitant]
  5. VITAMIN B-12 [Concomitant]
  6. CALCIUM [Concomitant]
  7. COREG [Concomitant]
  8. CRESTOR [Concomitant]
  9. DIGOXIN [Concomitant]
  10. DIOVAN [Concomitant]
  11. FISH OIL [Concomitant]
  12. KDUR [Concomitant]
  13. MAGNESIUM SULFATE [Concomitant]
  14. NEXIUM [Concomitant]
  15. TRICOR [Concomitant]
  16. VITAMIN D [Concomitant]
  17. LASIX [Concomitant]
  18. COUMADIN [Concomitant]
  19. LISINOPRIL [Concomitant]
  20. OCTREOTIDE ACETATE [Concomitant]

REACTIONS (3)
  - CHOLELITHIASIS [None]
  - HYPOMAGNESAEMIA [None]
  - PANCREATIC NEUROENDOCRINE TUMOUR [None]
